FAERS Safety Report 9372891 (Version 1)
Quarter: 2013Q2

REPORT INFORMATION
  Report Type: Spontaneous
  Country: FR (occurrence: FR)
  Receive Date: 20130627
  Receipt Date: 20130627
  Transmission Date: 20140414
  Serious: Yes (Hospitalization, Other)
  Sender: FDA-Public Use
  Company Number: FR-PFIZER INC-2013185603

PATIENT
  Age: 78 Year
  Sex: Male

DRUGS (12)
  1. TAHOR [Suspect]
     Indication: HYPERCHOLESTEROLAEMIA
     Dosage: UNK
     Route: 048
     Dates: end: 20130526
  2. IMOVANE [Suspect]
     Indication: INSOMNIA
     Dosage: UNK
     Route: 048
     Dates: end: 20130526
  3. PARACETAMOL [Suspect]
     Indication: PAIN
     Dosage: DAILY
     Route: 048
     Dates: end: 20130526
  4. TARCEVA [Concomitant]
     Dosage: 75 MG, DAILY
     Dates: start: 201303, end: 20130526
  5. TARCEVA [Concomitant]
     Dosage: UNK
     Dates: start: 20130605
  6. DOXYCYCLINE [Concomitant]
     Dosage: UNK
     Dates: end: 20130526
  7. DOXYCYCLINE [Concomitant]
     Dosage: UNK
     Dates: start: 20130605
  8. COUMADINE [Concomitant]
     Dosage: UNK
     Dates: end: 20130526
  9. COUMADINE [Concomitant]
     Dosage: UNK
     Dates: start: 20130603
  10. XANAX [Concomitant]
     Dosage: UNK
  11. LASILIX [Concomitant]
     Dosage: UNK
  12. DIGOXIN [Concomitant]
     Dosage: UNK

REACTIONS (9)
  - Dyspnoea [Unknown]
  - Hepatocellular injury [Recovered/Resolved]
  - Cholestasis [Recovered/Resolved]
  - Hepatic enzyme increased [Recovered/Resolved]
  - International normalised ratio increased [Unknown]
  - Pleural effusion [Unknown]
  - Haemothorax [Unknown]
  - Atrial fibrillation [Unknown]
  - Drug-induced liver injury [Unknown]
